FAERS Safety Report 10273218 (Version 1)
Quarter: 2014Q1

REPORT INFORMATION
  Report Type: Spontaneous
  Country: US (occurrence: None)
  Receive Date: 20140306
  Receipt Date: 20140306
  Transmission Date: 20141002
  Serious: Yes (Hospitalization)
  Sender: FDA-Public Use
  Company Number: 163-21880-13083668

PATIENT
  Age: 88 Year
  Sex: Male

DRUGS (1)
  1. REVLIMID (LENALIDOMIDE) (5 MILLIGRAM, CAPSULES) [Suspect]
     Indication: MYELODYSPLASTIC SYNDROME
     Dosage: 5 MG, 28 IN 28 D, PO
     Route: 048
     Dates: start: 20130818, end: 20130905

REACTIONS (7)
  - Anaemia [None]
  - Haemoglobin decreased [None]
  - Asthenia [None]
  - Headache [None]
  - Dizziness [None]
  - Nausea [None]
  - Dyspnoea [None]
